FAERS Safety Report 4748827-0 (Version None)
Quarter: 2005Q3

REPORT INFORMATION
  Report Type: 
  Country: None (occurrence: None)
  Receive Date: 20050812
  Receipt Date: 20050712
  Transmission Date: 20060218
  Serious: Yes (Hospitalization)
  Sender: FDA-Public Use
  Company Number: 410696

PATIENT
  Age: 43 Year
  Sex: Female

DRUGS (2)
  1. PEG-INTRON [Suspect]
     Indication: HEPATITIS C
     Dates: start: 20011215, end: 20040115
  2. RIBAVIRIN [Suspect]
     Indication: HEPATITIS C
     Dates: start: 20011215, end: 20040115

REACTIONS (1)
  - AUTOIMMUNE THROMBOCYTOPENIA [None]
